FAERS Safety Report 22361181 (Version 1)
Quarter: 2023Q2

REPORT INFORMATION
  Report Type: Spontaneous
  Country: JP (occurrence: None)
  Receive Date: 20230524
  Receipt Date: 20230524
  Transmission Date: 20230721
  Serious: Yes (Disabling)
  Sender: FDA-Public Use
  Company Number: 2023A118166

PATIENT
  Age: 65 Year
  Sex: Male

DRUGS (2)
  1. ONDEXXYA [Suspect]
     Active Substance: ANDEXANET ALFA
     Indication: Arterial haemorrhage
     Dosage: DOSE UNKNOWN
     Route: 042
     Dates: start: 20230502, end: 20230502
  2. EDOXABAN TOSYLATE [Concomitant]
     Active Substance: EDOXABAN TOSYLATE
     Dosage: DOSE UNKNOWN
     Route: 048

REACTIONS (2)
  - Hypoxic-ischaemic encephalopathy [Unknown]
  - Drug ineffective [Unknown]
